FAERS Safety Report 8846430 (Version 1)
Quarter: 2012Q4

REPORT INFORMATION
  Report Type: 
  Country: US (occurrence: US)
  Receive Date: 20121017
  Receipt Date: 20121017
  Transmission Date: 20130627
  Serious: Yes (Death)
  Sender: FDA-Public Use
  Company Number: US-PFIZER INC-2012257526

PATIENT

DRUGS (1)
  1. ZYVOX [Suspect]
     Dosage: UNK

REACTIONS (1)
  - Death [Fatal]
